FAERS Safety Report 7236134-6 (Version None)
Quarter: 2011Q1

REPORT INFORMATION
  Report Type: 
  Country: None (occurrence: None)
  Receive Date: 20110120
  Receipt Date: 20110117
  Transmission Date: 20110831
  Serious: No
  Sender: FDA-Public Use
  Company Number: JP-JNJFOC-20101201167

PATIENT
  Sex: Female
  Weight: 61 kg

DRUGS (36)
  1. DUROTEP MT PATCH [Suspect]
     Indication: PAIN
     Route: 062
  2. MAGLAX [Concomitant]
     Route: 048
  3. ADALAT [Concomitant]
     Route: 048
  4. DUROTEP MT PATCH [Suspect]
     Route: 062
  5. DAI KENCHU TO [Concomitant]
     Route: 048
  6. LASIX [Concomitant]
     Route: 048
  7. TEGRETOL [Concomitant]
     Indication: PAIN
     Route: 048
  8. DUROTEP MT PATCH [Suspect]
     Route: 062
  9. TAKEPRON [Concomitant]
     Route: 048
  10. LENDORMIN D [Concomitant]
     Route: 048
  11. MUCOSTA [Concomitant]
     Route: 048
  12. NEUROTROPIN [Concomitant]
     Indication: PAIN
     Route: 065
  13. MYSLEE [Concomitant]
     Route: 048
  14. NEUROTROPIN [Concomitant]
     Route: 048
  15. FLURBIPROFEN [Concomitant]
     Indication: PAIN
     Route: 065
  16. LOXONIN [Concomitant]
     Route: 062
  17. HYPEN [Concomitant]
     Indication: PAIN
     Route: 048
  18. BENZALIN [Concomitant]
     Route: 048
  19. CELECOXIB [Concomitant]
     Route: 048
  20. ACONINSUN [Concomitant]
     Indication: PAIN
     Route: 048
  21. AMLODIN OD [Concomitant]
     Route: 048
  22. POSTERISAN [Concomitant]
     Route: 065
  23. TEGRETOL [Concomitant]
     Route: 048
  24. TEGRETOL [Concomitant]
     Route: 048
  25. DUROTEP MT PATCH [Suspect]
     Route: 062
  26. LAXOBERON [Concomitant]
     Route: 048
  27. PURSENNID [Concomitant]
     Route: 048
  28. PREDONINE [Concomitant]
     Route: 048
  29. KELNAC [Concomitant]
     Route: 048
  30. BUSCOPAN [Concomitant]
     Indication: PAIN
     Route: 048
  31. DORAL [Concomitant]
     Route: 048
  32. LOXONIN [Concomitant]
     Indication: PAIN
     Route: 062
  33. RIMATIL [Concomitant]
     Route: 048
  34. VOLTAREN [Concomitant]
     Indication: PAIN
     Route: 054
  35. MOHRUS TAPE [Concomitant]
     Indication: PAIN
     Route: 062
  36. CALONAL [Concomitant]
     Indication: PAIN
     Route: 048

REACTIONS (1)
  - DRUG PRESCRIBING ERROR [None]
